FAERS Safety Report 9955408 (Version 1)
Quarter: 2014Q1

REPORT INFORMATION
  Report Type: Spontaneous
  Country: US (occurrence: US)
  Receive Date: 20140304
  Receipt Date: 20140304
  Transmission Date: 20141002
  Serious: Yes (Death)
  Sender: FDA-Public Use
  Company Number: US-MYLANLABS-2014S1004046

PATIENT
  Age: 53 Year
  Sex: Male

DRUGS (9)
  1. EPINEPHRINE [Suspect]
  2. ATROPINE SULFATE [Suspect]
  3. SODIUM BICARBONATE [Suspect]
  4. INSULIN [Suspect]
     Dosage: 10 U/KG/H
  5. WARFARIN [Concomitant]
  6. LORAZEPAM [Concomitant]
  7. FLUOXETINE [Concomitant]
  8. OLMESARTAN [Concomitant]
  9. CALCIUM CHLORIDE [Concomitant]

REACTIONS (4)
  - Drug ineffective [Fatal]
  - Bradycardia [Fatal]
  - Hypotension [Fatal]
  - Cardiac arrest [Fatal]
